FAERS Safety Report 7307410-3 (Version None)
Quarter: 2011Q1

REPORT INFORMATION
  Report Type: 
  Country: None (occurrence: None)
  Receive Date: 20110210
  Receipt Date: 20110125
  Transmission Date: 20110831
  Serious: Yes (Other)
  Sender: FDA-Public Use
  Company Number: BR-1184845

PATIENT
  Age: 60 Year
  Sex: Female

DRUGS (1)
  1. TRAVATAN [Suspect]
     Indication: GLAUCOMA
     Dosage: OPHTHALMIC
     Route: 047

REACTIONS (7)
  - CARDIAC OUTPUT DECREASED [None]
  - EMOTIONAL DISTRESS [None]
  - OCULAR HYPERAEMIA [None]
  - DRY EYE [None]
  - FATIGUE [None]
  - ARRHYTHMIA [None]
  - BLOOD PRESSURE INCREASED [None]
